FAERS Safety Report 20342824 (Version 1)
Quarter: 2022Q1

REPORT INFORMATION
  Report Type: Report from Study
  Country: CN (occurrence: CN)
  Receive Date: 20220117
  Receipt Date: 20220117
  Transmission Date: 20220423
  Serious: Yes (Other)
  Sender: FDA-Public Use
  Company Number: CN-TAKEDA-2022TUS001494

PATIENT
  Age: 6 Year
  Sex: Male
  Weight: 21 kg

DRUGS (3)
  1. ADVATE [Suspect]
     Active Substance: ANTIHEMOPHILIC FACTOR, HUMAN RECOMBINANT
     Indication: Factor VIII deficiency
     Dosage: 500 INTERNATIONAL UNIT, QOD
     Route: 040
     Dates: start: 20210102, end: 20211201
  2. ADVATE [Suspect]
     Active Substance: ANTIHEMOPHILIC FACTOR, HUMAN RECOMBINANT
     Indication: Factor VIII deficiency
     Dosage: 500 INTERNATIONAL UNIT, QOD
     Route: 040
     Dates: start: 20210102, end: 20211201
  3. ADVATE [Suspect]
     Active Substance: ANTIHEMOPHILIC FACTOR, HUMAN RECOMBINANT
     Indication: Factor VIII deficiency
     Dosage: 500 INTERNATIONAL UNIT, QOD
     Route: 040
     Dates: start: 20210102, end: 20211201

REACTIONS (3)
  - Contusion [Recovered/Resolved]
  - Drug ineffective [Recovered/Resolved]
  - Skin disorder [Recovered/Resolved]

NARRATIVE: CASE EVENT DATE: 20211201
